FAERS Safety Report 24224528 (Version 1)
Quarter: 2024Q3

REPORT INFORMATION
  Report Type: Spontaneous
  Country: ES (occurrence: ES)
  Receive Date: 20240819
  Receipt Date: 20240819
  Transmission Date: 20241016
  Serious: Yes (Other)
  Sender: ABBVIE
  Company Number: ES-RECORDATI-2024005940

PATIENT
  Age: 30 Year
  Sex: Female

DRUGS (4)
  1. CARIPRAZINE [Suspect]
     Active Substance: CARIPRAZINE
     Indication: Product use in unapproved indication
     Dosage: 1.5 MILLIGRAM
     Route: 065
  2. CARIPRAZINE [Suspect]
     Active Substance: CARIPRAZINE
     Indication: Product use in unapproved indication
     Dosage: 4.5 MILLIGRAMS
     Route: 065
  3. CARIPRAZINE [Suspect]
     Active Substance: CARIPRAZINE
     Indication: Product use in unapproved indication
     Dosage: 6 MILLIGRAMS
     Route: 065
  4. CARIPRAZINE [Suspect]
     Active Substance: CARIPRAZINE
     Indication: Product use in unapproved indication
     Dosage: 3 MILLIGRAMS
     Route: 065

REACTIONS (2)
  - Suicide attempt [Unknown]
  - Product use in unapproved indication [Unknown]
